FAERS Safety Report 5713199-1 (Version None)
Quarter: 2008Q2

REPORT INFORMATION
  Report Type: 
  Country: None (occurrence: None)
  Receive Date: 20080422
  Receipt Date: 19940915
  Transmission Date: 20081010
  Serious: Yes (Death)
  Sender: FDA-Public Use
  Company Number: IT-ROCHE-33083

PATIENT
  Age: 33 Year
  Sex: Male

DRUGS (2)
  1. GANCICLOVIR SODIUM [Suspect]
     Route: 042
  2. RETROVIR [Concomitant]
     Route: 065

REACTIONS (1)
  - DEATH [None]
